FAERS Safety Report 4548923-7 (Version None)
Quarter: 2004Q4

REPORT INFORMATION
  Report Type: 
  Country: None (occurrence: None)
  Receive Date: 20041227
  Receipt Date: 20041001
  Transmission Date: 20050328
  Serious: No
  Sender: FDA-Public Use
  Company Number: 04P-163-0275804-00

PATIENT
  Age: 74 Year
  Sex: Female
  Weight: 58.9676 kg

DRUGS (6)
  1. HUMIRA [Suspect]
     Indication: RHEUMATOID ARTHRITIS
     Dosage: 40 MG, 1 IN 2 WK, SUBCUTANEOUS
     Route: 058
     Dates: start: 20040601
  2. PREDNISONE [Concomitant]
  3. FOLIC ACID [Concomitant]
  4. HYDROXYCHLOROQUINE SULFATE [Concomitant]
  5. METHOTREXATE [Concomitant]
  6. GALENIC /PARACETAMOL/CODEINE [Concomitant]

REACTIONS (2)
  - FALL [None]
  - MUSCLE STRAIN [None]
